FAERS Safety Report 8385921-X (Version None)
Quarter: 2012Q2

REPORT INFORMATION
  Report Type: 
  Country: None (occurrence: None)
  Receive Date: 20120525
  Receipt Date: 20120514
  Transmission Date: 20120825
  Serious: Yes (Other)
  Sender: FDA-Public Use
  Company Number: US-JNJFOC-20120512738

PATIENT
  Sex: Female
  Weight: 62.14 kg

DRUGS (8)
  1. LORAZEPAM [Concomitant]
     Indication: BLADDER DISORDER
     Route: 065
  2. ZOLOFT [Concomitant]
     Indication: ANXIETY
     Route: 048
     Dates: start: 20020101
  3. ZOLOFT [Concomitant]
     Indication: DEPRESSION
     Route: 048
     Dates: start: 20020101
  4. LORAZEPAM [Concomitant]
     Indication: ANXIETY
     Route: 065
  5. ADDERALL 5 [Concomitant]
     Indication: FATIGUE
     Route: 048
  6. REMICADE [Suspect]
     Indication: ANKYLOSING SPONDYLITIS
     Route: 042
     Dates: start: 20120510
  7. ULTRAM [Concomitant]
     Indication: PAIN
     Route: 048
  8. VICODIN [Concomitant]
     Indication: BACK PAIN
     Route: 065

REACTIONS (3)
  - FATIGUE [None]
  - CRYING [None]
  - MIGRAINE [None]
